FAERS Safety Report 24121228 (Version 1)
Quarter: 2024Q3

REPORT INFORMATION
  Report Type: Spontaneous
  Country: US (occurrence: None)
  Receive Date: 20240722
  Receipt Date: 20240722
  Transmission Date: 20241016
  Serious: No
  Sender: Public
  Company Number: None

PATIENT
  Sex: Male

DRUGS (1)
  1. LENALIDOMIDE [Suspect]
     Active Substance: LENALIDOMIDE
     Indication: Plasma cell myeloma
     Dosage: 25 MG ORAL??FREQUENCY: 14 DAYS ON THEN 7 DAYS OFF
     Route: 048
     Dates: start: 202406

REACTIONS (4)
  - Palmar-plantar erythrodysaesthesia syndrome [None]
  - Fatigue [None]
  - Pain [None]
  - Loss of personal independence in daily activities [None]
